FAERS Safety Report 19478897 (Version 3)
Quarter: 2022Q1

REPORT INFORMATION
  Report Type: Spontaneous
  Country: US (occurrence: US)
  Receive Date: 20210701
  Receipt Date: 20220110
  Transmission Date: 20220423
  Serious: Yes (Other)
  Sender: FDA-Public Use
  Company Number: US-BEH-2021133350

PATIENT
  Sex: Female

DRUGS (20)
  1. PRIVIGEN [Suspect]
     Active Substance: HUMAN IMMUNOGLOBULIN G
     Indication: Hypogammaglobulinaemia
     Dosage: 15 GRAM, QMT
     Route: 042
     Dates: start: 201902
  2. PRIVIGEN [Suspect]
     Active Substance: HUMAN IMMUNOGLOBULIN G
     Dosage: UNK
     Route: 042
  3. PRIVIGEN [Suspect]
     Active Substance: HUMAN IMMUNOGLOBULIN G
     Dosage: 25 UNK
     Route: 042
  4. MUCINEX [Concomitant]
     Active Substance: GUAIFENESIN
     Route: 065
  5. CELEBREX [Concomitant]
     Active Substance: CELECOXIB
     Route: 065
  6. CYMBALTA [Concomitant]
     Active Substance: DULOXETINE HYDROCHLORIDE
     Dosage: 60 MILLIGRAM
     Route: 065
  7. FUROSEMIDE [Concomitant]
     Active Substance: FUROSEMIDE
     Route: 065
  8. SYNTHROID [Concomitant]
     Active Substance: LEVOTHYROXINE SODIUM
     Route: 065
  9. AMBIEN [Concomitant]
     Active Substance: ZOLPIDEM TARTRATE
     Dosage: 10 MILLIGRAM
     Route: 065
  10. BETAMETHASONE [Concomitant]
     Active Substance: BETAMETHASONE
     Dosage: 0.05 PERCENT
     Route: 061
  11. MYRBETRIQ [Concomitant]
     Active Substance: MIRABEGRON
     Dosage: 50 MILLIGRAM
     Route: 065
  12. PEPCID AC [Concomitant]
     Active Substance: FAMOTIDINE
     Dosage: 40 MILLIGRAM
  13. PROMETHAZINE [Concomitant]
     Active Substance: PROMETHAZINE HYDROCHLORIDE
     Dosage: 25 MILLIGRAM
     Route: 065
  14. OMEPRAZOLE [Concomitant]
     Active Substance: OMEPRAZOLE
     Dosage: 40 MILLIGRAM
     Route: 065
  15. ROPINIROLE [Concomitant]
     Active Substance: ROPINIROLE
     Dosage: 2 MILLIGRAM
     Route: 065
  16. ROSUVASTATIN [Concomitant]
     Active Substance: ROSUVASTATIN
     Dosage: 10 MILLIGRAM
     Route: 065
  17. TOPROL XL [Concomitant]
     Active Substance: METOPROLOL SUCCINATE
     Dosage: 50 MILLIGRAM
     Route: 065
  18. TYLENOL 8HR [Concomitant]
     Active Substance: ACETAMINOPHEN
     Dosage: 300/60 MG
     Route: 065
  19. VITAMIN D2 [Concomitant]
     Active Substance: ERGOCALCIFEROL
     Dosage: 50/200 MG
     Route: 065
  20. CIPROFLOXACIN\CIPROFLOXACIN HYDROCHLORIDE [Concomitant]
     Active Substance: CIPROFLOXACIN\CIPROFLOXACIN HYDROCHLORIDE
     Route: 065

REACTIONS (16)
  - Cellulitis gangrenous [Recovering/Resolving]
  - Diarrhoea [Unknown]
  - Arthritis [Unknown]
  - Gait inability [Unknown]
  - Arthralgia [Unknown]
  - Oedema peripheral [Unknown]
  - Onychomycosis [Recovering/Resolving]
  - Traumatic haemorrhage [Recovering/Resolving]
  - Purulent discharge [Recovering/Resolving]
  - Nasopharyngitis [Unknown]
  - Sinusitis [Unknown]
  - Tooth extraction [Unknown]
  - Bronchitis [Unknown]
  - Drug ineffective [Unknown]
  - Staphylococcal infection [Unknown]
  - Onychomadesis [Unknown]

NARRATIVE: CASE EVENT DATE: 20210101
